FAERS Safety Report 5240146-1 (Version None)
Quarter: 2007Q1

REPORT INFORMATION
  Report Type: 
  Country: None (occurrence: None)
  Receive Date: 20070216
  Receipt Date: 20070207
  Transmission Date: 20070707
  Serious: Yes (Other)
  Sender: FDA-Public Use
  Company Number: AU-PFIZER INC-2007011157

PATIENT
  Age: 56 Year
  Sex: Male

DRUGS (1)
  1. CAVERJECT IMPULSE DUAL CHAMBER SYSTEM POWDER, STERILE [Suspect]
     Indication: ERECTILE DYSFUNCTION

REACTIONS (3)
  - ERECTILE DYSFUNCTION [None]
  - ERECTION INCREASED [None]
  - PAINFUL ERECTION [None]
